FAERS Safety Report 5178591-5 (Version None)
Quarter: 2006Q4

REPORT INFORMATION
  Report Type: 
  Country: None (occurrence: None)
  Receive Date: 20061208
  Receipt Date: 20061124
  Transmission Date: 20070319
  Serious: Yes (Hospitalization)
  Sender: FDA-Public Use
  Company Number: 6025740F

PATIENT
  Age: 22 Year
  Sex: Female

DRUGS (2)
  1. NIASPAN [Suspect]
     Indication: DRUG LEVEL
     Dosage: 2000 MG DAILY PO
     Route: 048
     Dates: start: 20060710, end: 20060808
  2. VALETTE [Concomitant]

REACTIONS (5)
  - C-REACTIVE PROTEIN INCREASED [None]
  - COAGULATION FACTOR VIII LEVEL INCREASED [None]
  - FIBRIN D DIMER INCREASED [None]
  - PULMONARY EMBOLISM [None]
  - WHITE BLOOD CELL COUNT INCREASED [None]
